FAERS Safety Report 14337078 (Version 1)
Quarter: 2017Q4

REPORT INFORMATION
  Report Type: Report from Study
  Country: US (occurrence: US)
  Receive Date: 20171229
  Receipt Date: 20171229
  Transmission Date: 20180321
  Serious: Yes (Other)
  Sender: FDA-Public Use
  Company Number: US-PFIZER INC-2017482378

PATIENT
  Age: 41 Year
  Sex: Female

DRUGS (1)
  1. IBRANCE [Suspect]
     Active Substance: PALBOCICLIB
     Indication: BREAST CANCER
     Dosage: 100 MG, DAILY
     Route: 048
     Dates: start: 20171029

REACTIONS (9)
  - White blood cell count decreased [Recovering/Resolving]
  - Haemoglobin decreased [Recovering/Resolving]
  - Condition aggravated [Recovering/Resolving]
  - Dyspnoea [Recovering/Resolving]
  - Red blood cell count decreased [Not Recovered/Not Resolved]
  - Blood pressure decreased [Unknown]
  - Condition aggravated [Unknown]
  - Pulmonary oedema [Recovering/Resolving]
  - Laryngitis [Unknown]

NARRATIVE: CASE EVENT DATE: 2017
